FAERS Safety Report 22219313 (Version 1)
Quarter: 2023Q2

REPORT INFORMATION
  Report Type: Spontaneous
  Country: US (occurrence: US)
  Receive Date: 20230417
  Receipt Date: 20230417
  Transmission Date: 20230722
  Serious: Yes (Other)
  Sender: FDA-Public Use
  Company Number: US-PERRIGO-23US004442

PATIENT
  Age: 5 Year
  Sex: Female
  Weight: 20.862 kg

DRUGS (1)
  1. IBUPROFEN [Suspect]
     Active Substance: IBUPROFEN
     Indication: Pyrexia
     Dosage: 150 MG, SINGLE
     Route: 048
     Dates: start: 20230401, end: 20230401

REACTIONS (6)
  - Diarrhoea [Recovering/Resolving]
  - Vomiting [Recovered/Resolved]
  - Gastrointestinal haemorrhage [Unknown]
  - Hallucination [Recovered/Resolved]
  - Urine amphetamine positive [Unknown]
  - Renal function test abnormal [Unknown]

NARRATIVE: CASE EVENT DATE: 20230401
